FAERS Safety Report 6745574-0 (Version None)
Quarter: 2010Q2

REPORT INFORMATION
  Report Type: 
  Country: None (occurrence: None)
  Receive Date: 20100526
  Receipt Date: 20100526
  Transmission Date: 20101027
  Serious: Yes (Hospitalization)
  Sender: FDA-Public Use
  Company Number: None

PATIENT
  Sex: Female
  Weight: 93 kg

DRUGS (5)
  1. FLUOROURACIL [Suspect]
     Dosage: 5908 MG
     Dates: end: 20100521
  2. LEUCOVORIN CALCIUM [Suspect]
     Dosage: 844 MG
     Dates: end: 20100519
  3. ELOXATIN [Suspect]
     Dosage: 180 MG
     Dates: end: 20100519
  4. ASPIRIN [Concomitant]
  5. PLAVIX [Concomitant]

REACTIONS (2)
  - BLINDNESS TRANSIENT [None]
  - BLINDNESS UNILATERAL [None]
